FAERS Safety Report 9212216 (Version 2)
Quarter: 2013Q2

REPORT INFORMATION
  Report Type: Spontaneous
  Country: US (occurrence: US)
  Receive Date: 20130404
  Receipt Date: 20130506
  Transmission Date: 20140414
  Serious: No
  Sender: FDA-Public Use
  Company Number: US-AMGEN-USASP2013017092

PATIENT
  Age: 18 Year
  Sex: Female
  Weight: 59.86 kg

DRUGS (5)
  1. ENBREL [Suspect]
     Indication: JUVENILE IDIOPATHIC ARTHRITIS
     Dosage: 50 MG, ONCE WEEKLY
     Dates: start: 20120411, end: 201211
  2. METHOTREXATE [Concomitant]
     Dosage: UNK
     Route: 048
  3. FOLATE [Concomitant]
     Dosage: UNK
  4. NABUMETONE [Concomitant]
     Dosage: UNK
  5. CETRIZINE [Concomitant]
     Dosage: UNK

REACTIONS (4)
  - Arthralgia [Not Recovered/Not Resolved]
  - Pain in extremity [Not Recovered/Not Resolved]
  - Local swelling [Not Recovered/Not Resolved]
  - Injection site pain [Unknown]
